FAERS Safety Report 19803576 (Version 4)
Quarter: 2021Q4

REPORT INFORMATION
  Report Type: Report from Study
  Country: CA (occurrence: CA)
  Receive Date: 20210908
  Receipt Date: 20211026
  Transmission Date: 20220303
  Serious: Yes (Hospitalization, Other)
  Sender: FDA-Public Use
  Company Number: CA-JNJFOC-20210906983

PATIENT
  Age: 24 Year
  Sex: Male
  Weight: 73.9 kg

DRUGS (4)
  1. REMICADE [Suspect]
     Active Substance: INFLIXIMAB
     Indication: Crohn^s disease
     Dosage: REINDUCTION: ON 27-SEP-2021, WEEK 0 DOSE, ?ON 11-OCT-2021, RECEIVED WEEK 2 DOSE?DOSE OF 700 MG AT WE
     Route: 042
     Dates: start: 201306
  2. REMICADE [Suspect]
     Active Substance: INFLIXIMAB
     Dosage: LAST TREATMENT RECEIVED ON 12-JUL-2021
     Route: 042
     Dates: start: 20130730
  3. REMICADE [Suspect]
     Active Substance: INFLIXIMAB
     Dosage: REINDUCTION AT 5 MG/KG AT WEEKS 0, 2, 6 THEN 5 MG/KG EVERY 8 WEEKS.
     Route: 042
     Dates: start: 2021
  4. REMICADE [Suspect]
     Active Substance: INFLIXIMAB
     Dosage: PATIENT RECEIVED DOSE WEEK 0 AND 2 IN REINDUCTION AT 5 MG / KG, WEEK 6 AT 10 MG / KG(700 MG FIXED) A
     Route: 042
     Dates: start: 2021

REACTIONS (3)
  - Intestinal resection [Recovering/Resolving]
  - Crohn^s disease [Not Recovered/Not Resolved]
  - Drug specific antibody present [Unknown]

NARRATIVE: CASE EVENT DATE: 20210101
